FAERS Safety Report 25386300 (Version 1)
Quarter: 2025Q2

REPORT INFORMATION
  Report Type: Spontaneous
  Country: BE (occurrence: BE)
  Receive Date: 20250602
  Receipt Date: 20250602
  Transmission Date: 20250717
  Serious: Yes (Life-Threatening, Hospitalization, Other)
  Sender: PFIZER
  Company Number: BE-ROCHE-10000291291

PATIENT
  Sex: Male

DRUGS (2)
  1. RITUXIMAB [Suspect]
     Active Substance: RITUXIMAB
     Indication: Hairy cell leukaemia
     Route: 065
  2. ZELBORAF [Suspect]
     Active Substance: VEMURAFENIB
     Indication: Hairy cell leukaemia
     Dosage: 4 DF, 2X/DAY (EVERY 0.5 DAY)
     Route: 065
     Dates: start: 20180905

REACTIONS (3)
  - Influenza [Unknown]
  - Hairy cell leukaemia recurrent [Unknown]
  - Off label use [Unknown]
